FAERS Safety Report 6506552-X (Version None)
Quarter: 2009Q4

REPORT INFORMATION
  Report Type: 
  Country: None (occurrence: None)
  Receive Date: 20091221
  Receipt Date: 20091208
  Transmission Date: 20100525
  Serious: Yes (Death, Hospitalization)
  Sender: FDA-Public Use
  Company Number: GB-JNJFOC-20091203486

PATIENT
  Sex: Male

DRUGS (6)
  1. PARACETAMOL [Suspect]
     Route: 048
  2. PARACETAMOL [Suspect]
     Indication: DRUG USE FOR UNKNOWN INDICATION
     Route: 048
  3. ASPIRIN [Suspect]
     Indication: DRUG USE FOR UNKNOWN INDICATION
  4. DIPHENYLHYDANTOIN [Suspect]
     Indication: DRUG USE FOR UNKNOWN INDICATION
  5. PHENYLBUTAZONE [Suspect]
     Indication: DRUG USE FOR UNKNOWN INDICATION
  6. PRIMIDONE [Suspect]
     Indication: DRUG USE FOR UNKNOWN INDICATION

REACTIONS (3)
  - CARDIAC ARREST [None]
  - LIVER INJURY [None]
  - MULTIPLE DRUG OVERDOSE [None]
